FAERS Safety Report 5056709-2 (Version None)
Quarter: 2006Q2

REPORT INFORMATION
  Report Type: 
  Country: None (occurrence: None)
  Receive Date: 20060616
  Receipt Date: 20060315
  Transmission Date: 20061013
  Serious: No
  Sender: FDA-Public Use
  Company Number: 2006US000585

PATIENT
  Age: 80 Year
  Sex: Female

DRUGS (9)
  1. VESICARE [Suspect]
     Indication: INCONTINENCE
     Dosage: SEE IMAGE
     Route: 048
     Dates: start: 20050101
  2. NEXIUM [Concomitant]
  3. ACTOS /CAN/ (PIOGLITAZONE HYDROCHLORIDE) [Concomitant]
  4. ATICAN [Concomitant]
  5. ATENOLOL [Concomitant]
  6. LYRICA [Concomitant]
  7. METFORMIN (METFORMIN) [Concomitant]
  8. GLIPIZIDE [Concomitant]
  9. PLAVIX [Concomitant]

REACTIONS (1)
  - DRUG INEFFECTIVE [None]
